FAERS Safety Report 10072106 (Version 1)
Quarter: 2014Q2

REPORT INFORMATION
  Report Type: Spontaneous
  Country: US (occurrence: None)
  Receive Date: 20140410
  Receipt Date: 20140410
  Transmission Date: 20141212
  Serious: Yes (Other)
  Sender: FDA-Public Use
  Company Number: None

PATIENT
  Age: 70 Year
  Sex: Female
  Weight: 81.65 kg

DRUGS (1)
  1. OXYTROL [Suspect]
     Indication: INCONTINENCE
     Dates: start: 20140206, end: 20140228

REACTIONS (3)
  - Application site pruritus [None]
  - Application site burn [None]
  - Product quality issue [None]
